FAERS Safety Report 21423413 (Version 1)
Quarter: 2022Q4

REPORT INFORMATION
  Report Type: Spontaneous
  Country: US (occurrence: None)
  Receive Date: 20221007
  Receipt Date: 20221007
  Transmission Date: 20230113
  Serious: Yes (Other)
  Sender: FDA-Public Use
  Company Number: None

PATIENT
  Age: 67 Year
  Sex: Female
  Weight: 72.9 kg

DRUGS (2)
  1. FLUCELVAX QUADRIVALENT 2017/2018 (INFLUENZA A VIRUS A/DARWIN/11/2021 ( [Suspect]
     Active Substance: INFLUENZA A VIRUS A/DARWIN/11/2021 (H3N2) ANTIGEN (MDCK CELL DERIVED, PROPIOLACTONE INACTIVATED)\INF
     Indication: Product used for unknown indication
     Dosage: OTHER QUANTITY : 1 INJECTION(S);?OTHER FREQUENCY : YEARLY FLU SHOT;?
     Route: 030
     Dates: start: 20220927, end: 20220928
  2. TRIAMCINOLONE ACETONIDE [Suspect]
     Active Substance: TRIAMCINOLONE ACETONIDE

REACTIONS (6)
  - Pruritus [None]
  - Erythema [None]
  - Vulvovaginal pruritus [None]
  - Vaginal haemorrhage [None]
  - Vaginal haemorrhage [None]
  - Product complaint [None]

NARRATIVE: CASE EVENT DATE: 20221001
